FAERS Safety Report 6598796-6 (Version None)
Quarter: 2010Q1

REPORT INFORMATION
  Report Type: 
  Country: None (occurrence: None)
  Receive Date: 20100216
  Receipt Date: 20100204
  Transmission Date: 20100710
  Serious: Yes (Hospitalization)
  Sender: FDA-Public Use
  Company Number: 2009-04331

PATIENT
  Age: 60 Year
  Sex: Female
  Weight: 53.7 kg

DRUGS (14)
  1. VELCADE [Suspect]
     Indication: MANTLE CELL LYMPHOMA
     Dosage: 2.5 MG, INTRAVENOUS
     Route: 042
     Dates: start: 20090812
  2. DOXORUBICIN HCL [Suspect]
     Indication: MANTLE CELL LYMPHOMA
     Dosage: 80 MG, INTRAVENOUS
     Route: 042
     Dates: start: 20090812
  3. CYCLOPHOSPHAMIDE [Suspect]
     Indication: MANTLE CELL LYMPHOMA
     Dosage: 1200 MG, INTRAVENOUS
     Route: 042
     Dates: start: 20090812
  4. VINCRISTINE [Suspect]
     Indication: MANTLE CELL LYMPHOMA
     Dosage: 2 MG, INTRAVENOUS
     Route: 042
     Dates: start: 20090812
  5. PREDNISOLONE [Suspect]
     Indication: MANTLE CELL LYMPHOMA
     Dosage: 100 MG, ORAL
     Route: 048
     Dates: start: 20090812
  6. TRIMETHOPRIM + SULFAMETHOXAZOLE [Concomitant]
  7. OMEPRAZOLE [Concomitant]
  8. ONDANSETRON [Concomitant]
  9. ACYCLOVIR [Concomitant]
  10. DEXAMETHASONE TAB [Concomitant]
  11. METOCLOPRAMIDE [Concomitant]
  12. NYSTATIN [Concomitant]
  13. CORSODYL (CHLORHEXIDINE GLUCONATE) [Concomitant]
  14. DIFFLAM /00052302/ (BENZYDAMINE HYDROCHLORIDE) [Concomitant]

REACTIONS (2)
  - INFECTION [None]
  - PYREXIA [None]
